FAERS Safety Report 10510545 (Version 1)
Quarter: 2014Q4

REPORT INFORMATION
  Report Type: Spontaneous
  Country: US (occurrence: None)
  Receive Date: 20141009
  Receipt Date: 20141009
  Transmission Date: 20150528
  Serious: Yes (Life-Threatening, Hospitalization)
  Sender: FDA-Public Use
  Company Number: None

PATIENT
  Age: 22 Year
  Sex: Female
  Weight: 53.52 kg

DRUGS (2)
  1. QVAR [Suspect]
     Active Substance: BECLOMETHASONE DIPROPIONATE
     Indication: RESPIRATORY TRACT INFECTION
     Dosage: TWICE A DAY 2 PUFFS TWICE DAILY INHALATION
     Route: 055
     Dates: start: 20140919, end: 20141007
  2. QVAR [Suspect]
     Active Substance: BECLOMETHASONE DIPROPIONATE
     Indication: NO THERAPEUTIC RESPONSE
     Dosage: TWICE A DAY 2 PUFFS TWICE DAILY INHALATION
     Route: 055
     Dates: start: 20140919, end: 20141007

REACTIONS (4)
  - Depression [None]
  - Suicide attempt [None]
  - Panic attack [None]
  - Insomnia [None]

NARRATIVE: CASE EVENT DATE: 20141007
